FAERS Safety Report 19618352 (Version 1)
Quarter: 2021Q3

REPORT INFORMATION
  Report Type: Spontaneous
  Country: US (occurrence: US)
  Receive Date: 20210727
  Receipt Date: 20210727
  Transmission Date: 20211014
  Serious: Yes (Hospitalization, Other)
  Sender: FDA-Public Use
  Company Number: US-BRACCO-2021US03187

PATIENT
  Age: 29 Year
  Sex: Female

DRUGS (3)
  1. LUMASON [Suspect]
     Active Substance: SULFUR HEXAFLUORIDE
     Indication: ECHOCARDIOGRAM
     Dosage: UNK, SINGLE
     Route: 042
     Dates: start: 20210722, end: 20210722
  2. LUMASON [Suspect]
     Active Substance: SULFUR HEXAFLUORIDE
     Indication: ECHOCARDIOGRAM
     Dosage: UNK, SINGLE
     Route: 042
     Dates: start: 20210722, end: 20210722
  3. LUMASON [Suspect]
     Active Substance: SULFUR HEXAFLUORIDE
     Indication: ECHOCARDIOGRAM
     Dosage: UNK, SINGLE
     Route: 042
     Dates: start: 20210722, end: 20210722

REACTIONS (3)
  - Hypersensitivity [Unknown]
  - Deafness [Unknown]
  - Visual impairment [Unknown]

NARRATIVE: CASE EVENT DATE: 20210722
